FAERS Safety Report 7323441-1 (Version None)
Quarter: 2011Q1

REPORT INFORMATION
  Report Type: 
  Country: None (occurrence: None)
  Receive Date: 20110203
  Receipt Date: 20110124
  Transmission Date: 20110831
  Serious: Yes (Death)
  Sender: FDA-Public Use
  Company Number: WSDF_00738

PATIENT
  Sex: Female

DRUGS (1)
  1. WINRHO SDF LIQUID [Suspect]
     Dates: start: 20080626, end: 20080626

REACTIONS (4)
  - SLEEP DISORDER [None]
  - ASTHENIA [None]
  - PAIN [None]
  - HEADACHE [None]
